FAERS Safety Report 6257678-X (Version None)
Quarter: 2009Q3

REPORT INFORMATION
  Report Type: 
  Country: None (occurrence: None)
  Receive Date: 20090706
  Receipt Date: 20090625
  Transmission Date: 20100115
  Serious: Yes (Hospitalization, Other)
  Sender: FDA-Public Use
  Company Number: DE-TEVA-190320ISR

PATIENT
  Sex: Female

DRUGS (2)
  1. COPAXONE [Suspect]
     Route: 058
  2. CORTISONE [Suspect]
     Indication: MULTIPLE SCLEROSIS RELAPSE

REACTIONS (8)
  - FRACTURED SACRUM [None]
  - INFLAMMATION [None]
  - MENINGEAL DISORDER [None]
  - MULTIPLE SCLEROSIS RELAPSE [None]
  - OSTEOCHONDROSIS [None]
  - OSTEOMYELITIS [None]
  - PATHOLOGICAL FRACTURE [None]
  - SPONDYLITIS [None]
